FAERS Safety Report 15366777 (Version 4)
Quarter: 2018Q3

REPORT INFORMATION
  Report Type: Spontaneous
  Country: US (occurrence: US)
  Receive Date: 20180910
  Receipt Date: 20180921
  Transmission Date: 20181010
  Serious: Yes (Hospitalization, Other)
  Sender: FDA-Public Use
  Company Number: US-PFIZER INC-2018362843

PATIENT
  Age: 80 Year
  Sex: Male
  Weight: 80 kg

DRUGS (4)
  1. LYRICA [Suspect]
     Active Substance: PREGABALIN
     Indication: NEURALGIA
     Dosage: 150 MG, 3X/DAY
     Route: 065
  2. LYRICA [Suspect]
     Active Substance: PREGABALIN
     Indication: NEUROPATHY PERIPHERAL
     Dosage: 50 MG, 2X/DAY
     Route: 065
  3. LYRICA [Suspect]
     Active Substance: PREGABALIN
     Dosage: 50 MG, EVERY OTHER DAY AND WAS DOING SO FOR A WEEK
     Route: 065
     Dates: start: 2018
  4. COUMADIN [Suspect]
     Active Substance: WARFARIN SODIUM
     Indication: ATRIAL FIBRILLATION
     Dosage: 10 MG, 1X/DAY
     Route: 065
     Dates: start: 201802, end: 201802

REACTIONS (5)
  - Thrombosis [Recovered/Resolved]
  - Pneumonia [Recovered/Resolved with Sequelae]
  - Heart rate irregular [Recovered/Resolved with Sequelae]
  - Intentional product use issue [Unknown]
  - Cardiac failure [Unknown]

NARRATIVE: CASE EVENT DATE: 2018
